FAERS Safety Report 13945137 (Version 1)
Quarter: 2017Q3

REPORT INFORMATION
  Report Type: Spontaneous
  Country: BG (occurrence: BG)
  Receive Date: 20170907
  Receipt Date: 20170907
  Transmission Date: 20171128
  Serious: Yes (Other)
  Sender: FDA-Public Use
  Company Number: BG-TEVA-803078ROM

PATIENT
  Sex: Female

DRUGS (2)
  1. LEFLUNOMIDE. [Suspect]
     Active Substance: LEFLUNOMIDE
     Dosage: 20 MG/DAY
     Route: 065
  2. ADALIMUMAB [Concomitant]
     Active Substance: ADALIMUMAB
     Dosage: 40 MG EVERY OTHER WEEK
     Route: 058

REACTIONS (4)
  - Pustular psoriasis [Unknown]
  - Diabetic ketoacidosis [Unknown]
  - Acute kidney injury [Recovered/Resolved]
  - Condition aggravated [Unknown]
